FAERS Safety Report 11787823 (Version 1)
Quarter: 2015Q4

REPORT INFORMATION
  Report Type: Spontaneous
  Country: US (occurrence: None)
  Receive Date: 20151130
  Receipt Date: 20151130
  Transmission Date: 20160305
  Serious: Yes (Other)
  Sender: FDA-Public Use
  Company Number: US-MDT-ADR-2015-02253

PATIENT
  Age: 60 Year
  Sex: Female

DRUGS (2)
  1. BUPIVACAINE INTRATHECAL - 450.0 MCG/ML [Suspect]
     Active Substance: BUPIVACAINE
     Dosage: 764.40 MCG/DAY
  2. BACLOFEN INTRATHECAL - 15.0 MCG/ML [Suspect]
     Active Substance: BACLOFEN
     Indication: PAIN
     Dosage: 25.480 MCG/DAY

REACTIONS (5)
  - Impaired healing [None]
  - Pain [None]
  - Muscular weakness [None]
  - Device malfunction [None]
  - Post procedural pulmonary embolism [None]
